FAERS Safety Report 23097975 (Version 6)
Quarter: 2023Q4

REPORT INFORMATION
  Report Type: Spontaneous
  Country: JP (occurrence: JP)
  Receive Date: 20231023
  Receipt Date: 20231221
  Transmission Date: 20240109
  Serious: Yes (Other)
  Sender: FDA-Public Use
  Company Number: JP-TAKEDA-2023TUS102125

PATIENT
  Age: 38 Year
  Sex: Female

DRUGS (4)
  1. LIALDA [Suspect]
     Active Substance: MESALAMINE
     Indication: Colitis ulcerative
     Dosage: 4800 MILLIGRAM, QD
     Route: 048
  2. MIRIKIZUMAB [Suspect]
     Active Substance: MIRIKIZUMAB
     Indication: Colitis ulcerative
     Dosage: 300 MILLIGRAM, QD
     Route: 041
     Dates: start: 20230920
  3. PREDNISOLONE [Concomitant]
     Active Substance: PREDNISOLONE
     Indication: Colitis ulcerative
     Dosage: 5 MILLIGRAM, QD
     Route: 065
  4. BUDESONIDE [Concomitant]
     Active Substance: BUDESONIDE
     Indication: Colitis ulcerative
     Dosage: UNK
     Route: 065

REACTIONS (7)
  - Haematochezia [Unknown]
  - Diarrhoea [Unknown]
  - Abdominal pain [Unknown]
  - Pyrexia [Unknown]
  - Drug ineffective [Unknown]
  - Injection site pain [Unknown]
  - Malaise [Recovering/Resolving]

NARRATIVE: CASE EVENT DATE: 20230101
